FAERS Safety Report 19501884 (Version 1)
Quarter: 2021Q3

REPORT INFORMATION
  Report Type: Spontaneous
  Country: US (occurrence: US)
  Receive Date: 20210707
  Receipt Date: 20210707
  Transmission Date: 20211014
  Serious: Yes (Disabling)
  Sender: FDA-Public Use
  Company Number: None

PATIENT
  Age: 45 Year
  Sex: Female
  Weight: 56.25 kg

DRUGS (1)
  1. METHYLPHENIDATE ER 27MG TABLETS [Suspect]
     Active Substance: METHYLPHENIDATE
     Indication: ATTENTION DEFICIT HYPERACTIVITY DISORDER
     Route: 048
     Dates: start: 20210325, end: 20210427

REACTIONS (13)
  - Tremor [None]
  - Vaginal haemorrhage [None]
  - Dizziness [None]
  - Disorientation [None]
  - Irritability [None]
  - Hormone level abnormal [None]
  - Quality of life decreased [None]
  - Product formulation issue [None]
  - Dysmenorrhoea [None]
  - Drug delivery system malfunction [None]
  - Reaction to azo-dyes [None]
  - Product substitution issue [None]
  - Loss of personal independence in daily activities [None]

NARRATIVE: CASE EVENT DATE: 20210325
